FAERS Safety Report 9844293 (Version 1)
Quarter: 2014Q1

REPORT INFORMATION
  Report Type: Spontaneous
  Country: US (occurrence: US)
  Receive Date: 20140127
  Receipt Date: 20140127
  Transmission Date: 20141002
  Serious: Yes (Other)
  Sender: FDA-Public Use
  Company Number: US-ACCORD-021426

PATIENT
  Age: 56 Year
  Sex: Female

DRUGS (2)
  1. HYDROCHLOROTHIAZIDE [Suspect]
     Indication: HYPERCALCIURIA
  2. ERGOCALCIFEROL [Concomitant]

REACTIONS (1)
  - Mycosis fungoides [Recovering/Resolving]
